FAERS Safety Report 8740730 (Version 4)
Quarter: 2014Q2

REPORT INFORMATION
  Report Type: Spontaneous
  Country: US (occurrence: US)
  Receive Date: 20120823
  Receipt Date: 20140514
  Transmission Date: 20141212
  Serious: Yes (Hospitalization, Other)
  Sender: FDA-Public Use
  Company Number: US-ASTRAZENECA-2012SE57612

PATIENT
  Age: 65 Year
  Sex: Female
  Weight: 107.5 kg

DRUGS (3)
  1. SYMBICORT [Suspect]
     Indication: ASTHMA
     Dosage: 160/4.5 MCG, DAILY
     Route: 055
  2. SYMBICORT [Suspect]
     Indication: ASTHMA
     Dosage: 160/4.5 MCG, 2 PUFFS PRN
     Route: 055
     Dates: start: 2011
  3. PROAIR [Concomitant]
     Indication: EMERGENCY CARE
     Dosage: 2 PUFFS PRN
     Route: 055

REACTIONS (15)
  - Cerebrovascular accident [Unknown]
  - Spinal cord compression [Unknown]
  - Carpal tunnel syndrome [Unknown]
  - Pulmonary embolism [Unknown]
  - Dyspnoea [Unknown]
  - Asthma [Unknown]
  - Deep vein thrombosis [Unknown]
  - Weight increased [Unknown]
  - Osteoarthritis [Unknown]
  - Wheezing [Unknown]
  - Respiratory disorder [Unknown]
  - Agitation [Unknown]
  - Nervousness [Unknown]
  - Off label use [Unknown]
  - Intentional product misuse [Not Recovered/Not Resolved]
